FAERS Safety Report 12893600 (Version 2)
Quarter: 2016Q4

REPORT INFORMATION
  Report Type: Spontaneous
  Country: JP (occurrence: JP)
  Receive Date: 20161028
  Receipt Date: 20161109
  Transmission Date: 20170207
  Serious: Yes (Other)
  Sender: FDA-Public Use
  Company Number: JP-SHIRE-JP201615610

PATIENT
  Age: 8 Decade
  Sex: Male

DRUGS (1)
  1. FOSRENOL [Suspect]
     Active Substance: LANTHANUM CARBONATE
     Indication: DIABETIC NEPHROPATHY
     Dosage: UNK, UNKNOWN
     Route: 048
     Dates: start: 201106

REACTIONS (4)
  - Gastritis erosive [Unknown]
  - Chronic gastritis [Unknown]
  - Medication residue present [Unknown]
  - Gastric ulcer [Unknown]

NARRATIVE: CASE EVENT DATE: 201106
